FAERS Safety Report 6502123-X (Version None)
Quarter: 2009Q4

REPORT INFORMATION
  Report Type: 
  Country: None (occurrence: None)
  Receive Date: 20091216
  Receipt Date: 20091012
  Transmission Date: 20100525
  Serious: No
  Sender: FDA-Public Use
  Company Number: US-ABBOTT-09P-163-0602539-00

PATIENT
  Sex: Female
  Weight: 103.51 kg

DRUGS (7)
  1. TRILIPIX [Suspect]
     Indication: BLOOD CHOLESTEROL INCREASED
     Dates: start: 20090801, end: 20091010
  2. SYNTHROID [Concomitant]
     Indication: HYPOTHYROIDISM
  3. HYDROCHLORATHIAZIDE [Concomitant]
     Indication: HYPERTENSION
  4. REMAPRIL [Concomitant]
     Indication: HYPERTENSION
  5. LOVASA [Concomitant]
     Indication: SUPPLEMENTATION THERAPY
  6. LANTUS [Concomitant]
     Indication: DIABETES MELLITUS
  7. HUMALOG [Concomitant]
     Indication: DIABETES MELLITUS

REACTIONS (9)
  - AGITATION [None]
  - ANGER [None]
  - GOITRE [None]
  - HIATUS HERNIA [None]
  - HYPOAESTHESIA [None]
  - INAPPROPRIATE SCHEDULE OF DRUG ADMINISTRATION [None]
  - INSOMNIA [None]
  - OESOPHAGEAL DISORDER [None]
  - RESTLESS LEGS SYNDROME [None]
